FAERS Safety Report 17974621 (Version 1)
Quarter: 2020Q3

REPORT INFORMATION
  Report Type: Report from Study
  Country: DE (occurrence: DE)
  Receive Date: 20200702
  Receipt Date: 20200702
  Transmission Date: 20201103
  Serious: Yes (Other)
  Sender: FDA-Public Use
  Company Number: DE-AMGEN-DEUSL2020019445

PATIENT
  Age: 14 Year
  Sex: Female
  Weight: 50 kg

DRUGS (1)
  1. AMGEVITA [Suspect]
     Active Substance: ADALIMUMAB
     Indication: CROHN^S DISEASE
     Dosage: UNK, Q2WK
     Route: 058
     Dates: start: 20191104

REACTIONS (4)
  - Alopecia [Recovering/Resolving]
  - Nasal inflammation [Recovered/Resolved]
  - Acne [Not Recovered/Not Resolved]
  - Dry skin [Unknown]

NARRATIVE: CASE EVENT DATE: 201911
